FAERS Safety Report 5256270-3 (Version None)
Quarter: 2007Q1

REPORT INFORMATION
  Report Type: 
  Country: None (occurrence: None)
  Receive Date: 20061219
  Receipt Date: 20061004
  Transmission Date: 20070707
  Serious: No
  Sender: FDA-Public Use
  Company Number: 2006US002273

PATIENT
  Age: 56 Year
  Sex: Female

DRUGS (3)
  1. VESICARE [Suspect]
     Indication: HYPERTONIC BLADDER
     Dosage: 10 MG, UID/QD, ORAL 20 MG, UID/QD, ORAL
     Route: 048
     Dates: start: 20060101
  2. DYAZIDE [Concomitant]
  3. METHADONE HCL [Concomitant]

REACTIONS (1)
  - INCONTINENCE [None]
